FAERS Safety Report 4505160-X (Version None)
Quarter: 2004Q4

REPORT INFORMATION
  Report Type: 
  Country: None (occurrence: None)
  Receive Date: 20041117
  Receipt Date: 20041117
  Transmission Date: 20050328
  Serious: Yes (Hospitalization)
  Sender: FDA-Public Use
  Company Number: None

PATIENT
  Age: 73 Year
  Sex: Male

DRUGS (9)
  1. FUROSEMIDE [Suspect]
     Dosage: 40 MG BID
     Dates: start: 20000301
  2. SPIRONOLACTONE [Suspect]
     Dosage: 25 MG BID
     Dates: start: 20021201
  3. LOVENOX [Concomitant]
  4. ATORVASTATIN CALCIUM [Concomitant]
  5. ACETAMINOPHEN [Concomitant]
  6. CETIRIZINE HCL [Concomitant]
  7. NITROGLYCERIN [Concomitant]
  8. TERBINAFINE [Concomitant]
  9. OLANZAPINE [Concomitant]

REACTIONS (3)
  - DEHYDRATION [None]
  - DIZZINESS [None]
  - ORTHOSTATIC HYPOTENSION [None]
